FAERS Safety Report 5264813-9 (Version None)
Quarter: 2007Q1

REPORT INFORMATION
  Report Type: 
  Country: None (occurrence: None)
  Receive Date: 20070314
  Receipt Date: 20070312
  Transmission Date: 20070707
  Serious: Yes (Hospitalization)
  Sender: FDA-Public Use
  Company Number: BR-GLAXOSMITHKLINE-A0637219A

PATIENT
  Age: 77 Year
  Sex: Female
  Weight: 70 kg

DRUGS (3)
  1. CLAVULIN [Suspect]
     Indication: TOOTH INFECTION
     Dosage: 875MG SINGLE DOSE
     Route: 048
     Dates: start: 20070122, end: 20070122
  2. INSULIN [Concomitant]
     Route: 065
     Dates: start: 20010101
  3. ENALAPRIL MALEATE [Concomitant]
     Dates: start: 20010101

REACTIONS (5)
  - HYPERHIDROSIS [None]
  - HYPOTENSION [None]
  - OEDEMA [None]
  - PHARMACEUTICAL PRODUCT COMPLAINT [None]
  - URTICARIA [None]
